FAERS Safety Report 17375589 (Version 1)
Quarter: 2020Q1

REPORT INFORMATION
  Report Type: Spontaneous
  Country: CA (occurrence: CA)
  Receive Date: 20200206
  Receipt Date: 20200206
  Transmission Date: 20200409
  Serious: Yes (Life-Threatening)
  Sender: FDA-Public Use
  Company Number: CA-TEVA-2020-CA-1179869

PATIENT
  Age: 66 Year
  Sex: Female
  Weight: 68 kg

DRUGS (22)
  1. BISACODYL. [Concomitant]
     Active Substance: BISACODYL
  2. CALCIUM CARBONATE. [Concomitant]
     Active Substance: CALCIUM CARBONATE
  3. CRANBERRY. [Concomitant]
     Active Substance: CRANBERRY
  4. VITAMIN C [Concomitant]
     Active Substance: ASCORBIC ACID
  5. METOCLOPRAMIDE. [Concomitant]
     Active Substance: METOCLOPRAMIDE
  6. METOPROLOL. [Concomitant]
     Active Substance: METOPROLOL
  7. MIRTAZAPINE. [Concomitant]
     Active Substance: MIRTAZAPINE
  8. DICETEL [Concomitant]
     Active Substance: PINAVERIUM BROMIDE
  9. MULTIVITAMINES AND MINERALS [Concomitant]
     Active Substance: MINERALS\VITAMINS
  10. PROTEIN POWDER [Concomitant]
  11. SENNOSIDES. [Concomitant]
     Active Substance: SENNOSIDES
  12. TRIAMTERENE AND HYDROCHLOROTHIAZIDE [Suspect]
     Active Substance: HYDROCHLOROTHIAZIDE\TRIAMTERENE
     Indication: OEDEMA
     Route: 065
  13. ACETAMINOPHEN. [Concomitant]
     Active Substance: ACETAMINOPHEN
  14. FERAMAX [Concomitant]
     Active Substance: IRON\POLYSACCHARIDES
  15. VITAMIN D [ERGOCALCIFEROL] [Concomitant]
     Active Substance: ERGOCALCIFEROL
  16. LORAZEPAM. [Concomitant]
     Active Substance: LORAZEPAM
  17. RABEPRAZOLE [Concomitant]
     Active Substance: RABEPRAZOLE
  18. TRIAMTERENE AND HYDROCHLOROTHIAZIDE [Suspect]
     Active Substance: HYDROCHLOROTHIAZIDE\TRIAMTERENE
     Indication: HYPERTENSION
     Dosage: .5 DOSAGE FORMS DAILY;
     Route: 048
  19. SODIUM BICARBONATE. [Concomitant]
     Active Substance: SODIUM BICARBONATE
  20. SERTRALINE HYDROCHLORIDE. [Suspect]
     Active Substance: SERTRALINE HYDROCHLORIDE
     Indication: ANXIETY
     Dosage: 100 MILLIGRAM DAILY;
     Route: 048
  21. AMLODIPINE [Concomitant]
     Active Substance: AMLODIPINE BESYLATE
  22. LEVOTHYROXINE. [Concomitant]
     Active Substance: LEVOTHYROXINE

REACTIONS (2)
  - Hyponatraemia [Recovered/Resolved]
  - Abdominal pain [Recovered/Resolved]
